FAERS Safety Report 17554673 (Version 1)
Quarter: 2020Q1

REPORT INFORMATION
  Report Type: Spontaneous
  Country: US (occurrence: US)
  Receive Date: 20200318
  Receipt Date: 20200318
  Transmission Date: 20200409
  Serious: No
  Sender: FDA-Public Use
  Company Number: US-009507513-2002USA009530

PATIENT
  Age: 13 Year
  Sex: Male

DRUGS (1)
  1. TEMODAR [Suspect]
     Active Substance: TEMOZOLOMIDE
     Indication: PINEAL PARENCHYMAL NEOPLASM MALIGNANT
     Dosage: DAILY TEMOZOLOMIDE AT 75 MG/M2
     Route: 048

REACTIONS (1)
  - Off label use [Unknown]
